FAERS Safety Report 21518584 (Version 6)
Quarter: 2023Q1

REPORT INFORMATION
  Report Type: Report from Study
  Country: US (occurrence: US)
  Receive Date: 20221028
  Receipt Date: 20230118
  Transmission Date: 20230418
  Serious: Yes (Hospitalization)
  Sender: FDA-Public Use
  Company Number: US-GBT-017458

PATIENT
  Age: 13 Year
  Sex: Male

DRUGS (6)
  1. OXBRYTA [Suspect]
     Active Substance: VOXELOTOR
     Indication: Sickle cell disease
     Route: 048
     Dates: start: 20200818
  2. FOLVITE [Concomitant]
     Active Substance: FOLIC ACID
     Indication: Sickle cell disease
     Route: 048
     Dates: start: 20140320
  3. HYDREA [Concomitant]
     Active Substance: HYDROXYUREA
     Indication: Sickle cell disease
     Route: 048
     Dates: start: 20210428
  4. HYDROcodone-acetaminophen (Lorcet) 5-325 mg tablet [Concomitant]
     Indication: Sickle cell disease
     Dosage: Q6H PRN FOR MODERATE PAIN
     Route: 048
     Dates: start: 20220318
  5. amoxicillin (Amoxil) [Concomitant]
     Indication: Pneumococcal infection
     Route: 048
     Dates: start: 20120917
  6. cholealciferol-vitamin D3 50 mcg (2,000 unit) tablet [Concomitant]
     Indication: Vitamin D deficiency
     Dosage: 50 MCG (2,000 UNIT)
     Route: 048
     Dates: start: 20200306

REACTIONS (3)
  - Sickle cell anaemia with crisis [Recovered/Resolved]
  - Acute chest syndrome [Recovered/Resolved]
  - Ileus [Recovered/Resolved]

NARRATIVE: CASE EVENT DATE: 20220603
